FAERS Safety Report 19041327 (Version 1)
Quarter: 2021Q1

REPORT INFORMATION
  Report Type: Spontaneous
  Country: US (occurrence: US)
  Receive Date: 20210323
  Receipt Date: 20210323
  Transmission Date: 20210420
  Serious: Yes (Hospitalization)
  Sender: FDA-Public Use
  Company Number: US-TEVA-2021-US-1893155

PATIENT
  Age: 70 Year
  Sex: Female

DRUGS (15)
  1. BETHANECHOL [Concomitant]
     Active Substance: BETHANECHOL
     Dosage: 25 MG BID
  2. LEVOTHYROXINE. [Concomitant]
     Active Substance: LEVOTHYROXINE
     Dosage: 137 MCG ONCE DAILY
  3. PROMETHAZINE/DEXTROMETHORPHAN [Concomitant]
     Active Substance: DEXTROMETHORPHAN\PROMETHAZINE
     Dosage: 5 ML FOUR TIMES DAILY PRN COUGH
  4. TETRABENAZINE. [Concomitant]
     Active Substance: TETRABENAZINE
     Dosage: 25 MG FOUR TIMES DAILY
  5. TRIAMTERENE/HYDROCHLOROTHIAZIDE [Concomitant]
     Active Substance: HYDROCHLOROTHIAZIDE\TRIAMTERENE
     Dosage: 37.5/25 MG PO ^THREE TIMES DAILY^ ^2 CAPS AT NIGHT^ ^1 CAP AT NIGHT
  6. SIMVASTATIN. [Concomitant]
     Active Substance: SIMVASTATIN
     Dosage: 10 MG ONCE DAILY
  7. AUSTEDO [Suspect]
     Active Substance: DEUTETRABENAZINE
     Dosage: 18 MILLIGRAM DAILY; WEEK 2, TITRATION; 9 MG TABLET TWICE DAILY
     Route: 048
     Dates: start: 202102, end: 202103
  8. AUSTEDO [Suspect]
     Active Substance: DEUTETRABENAZINE
     Indication: TARDIVE DYSKINESIA
     Dosage: 12 MILLIGRAM DAILY; WEEK 1, TITRATION; 6 MG TABLET TWICE DAILY
     Route: 048
     Dates: start: 202102, end: 202102
  9. DULOXETINE. [Concomitant]
     Active Substance: DULOXETINE
     Dosage: 20 MG BID
  10. PANTOPRAZOLE [Concomitant]
     Active Substance: PANTOPRAZOLE
     Dosage: 40 MG BID
  11. PROPRANOLOL ER [Concomitant]
     Active Substance: PROPRANOLOL HYDROCHLORIDE
     Dosage: 60 MG, 2 CAPS DAILY
  12. VALACYCLOVIR [Concomitant]
     Active Substance: VALACYCLOVIR HYDROCHLORIDE
     Dosage: 1 GRAM, TAKE 2 IMMEDIATELY AND REPEAT IN 12 HOURS AS DIRECTED FOR FEVER BLISTER
  13. CARBIDOPA/LEVODOPA [Concomitant]
     Active Substance: CARBIDOPA\LEVODOPA
     Dosage: 36.25/145 MG THREE TIMES DAILY
  14. LORAZEPAM. [Concomitant]
     Active Substance: LORAZEPAM
     Dosage: 1 MG PO PRN SLEEP
     Route: 048
  15. NYSTATIN POWDER [Concomitant]
     Active Substance: NYSTATIN
     Route: 061

REACTIONS (2)
  - Oropharyngeal pain [Unknown]
  - Dyspnoea [Unknown]

NARRATIVE: CASE EVENT DATE: 20210301
